FAERS Safety Report 7171785-9 (Version None)
Quarter: 2010Q4

REPORT INFORMATION
  Report Type: 
  Country: None (occurrence: None)
  Receive Date: 20101217
  Receipt Date: 20101207
  Transmission Date: 20110411
  Serious: Yes (Hospitalization, Other)
  Sender: FDA-Public Use
  Company Number: FR-GENENTECH-306892

PATIENT
  Sex: Female

DRUGS (4)
  1. MABTHERA [Suspect]
     Indication: SJOGREN'S SYNDROME
     Dosage: 1 G, UNK
     Route: 042
     Dates: start: 20100219, end: 20100305
  2. SOLU-MEDROL [Concomitant]
     Indication: PREMEDICATION
  3. POLARAMINE [Concomitant]
     Indication: PREMEDICATION
  4. PERFALGAN [Concomitant]
     Indication: PREMEDICATION

REACTIONS (2)
  - METASTASES TO PERITONEUM [None]
  - OVARIAN CANCER [None]
